FAERS Safety Report 4562700-2 (Version None)
Quarter: 2005Q1

REPORT INFORMATION
  Report Type: 
  Country: None (occurrence: None)
  Receive Date: 20050124
  Receipt Date: 20050110
  Transmission Date: 20050727
  Serious: Yes (Hospitalization)
  Sender: FDA-Public Use
  Company Number: 2005015379

PATIENT
  Age: 53 Year
  Sex: Female

DRUGS (3)
  1. SOLU-MEDROL [Suspect]
     Indication: ILL-DEFINED DISORDER
     Dosage: 1 MG/KG (1 MG/KG, IN  1D), INTRAMUSCULAR
     Route: 030
     Dates: start: 20040214, end: 20040223
  2. SYNACTHENE (TETRACOSACTIDE) [Suspect]
     Indication: ILL-DEFINED DISORDER
     Dosage: 1 MG (1 MG, 1 IN 1 D), INTRAMUSCULAR
     Route: 030
     Dates: start: 20040214, end: 20040223
  3. SINGULAIR [Suspect]
     Indication: ASTHMA
     Dosage: 1 DOSE FORM (1 IN 1 D ), ORAL
     Route: 048
     Dates: start: 20030901, end: 20040515

REACTIONS (3)
  - ALLERGIC GRANULOMATOUS ANGIITIS [None]
  - NEURITIS [None]
  - PERIPHERAL SENSORIMOTOR NEUROPATHY [None]
